FAERS Safety Report 12483976 (Version 1)
Quarter: 2016Q2

REPORT INFORMATION
  Report Type: Spontaneous
  Country: US (occurrence: None)
  Receive Date: 20160620
  Receipt Date: 20160620
  Transmission Date: 20160815
  Serious: Yes (Life-Threatening, Hospitalization)
  Sender: FDA-Public Use
  Company Number: None

PATIENT
  Age: 50 Year
  Sex: Male
  Weight: 74.3 kg

DRUGS (5)
  1. BUSPIRONE [Concomitant]
     Active Substance: BUSPIRONE HYDROCHLORIDE
  2. SULFASALAZINE DR 500MG [Suspect]
     Active Substance: SULFASALAZINE
     Indication: SPONDYLOARTHROPATHY
     Dosage: 1/5-12/2016 + 1/19 1 DAY??500MG QD FOR 3D, THEN BID ORAL
     Route: 048
     Dates: start: 20160105, end: 20160112
  3. QUETIAPINE. [Concomitant]
     Active Substance: QUETIAPINE
  4. IBUPROFEN. [Concomitant]
     Active Substance: IBUPROFEN
  5. SUMATRIPTAN. [Concomitant]
     Active Substance: SUMATRIPTAN

REACTIONS (22)
  - Pyrexia [None]
  - Palpitations [None]
  - Left ventricular hypertrophy [None]
  - Blood pressure systolic decreased [None]
  - Ventricular hypokinesia [None]
  - Dyspnoea [None]
  - Ejection fraction decreased [None]
  - Left ventricular dysfunction [None]
  - Myocardial ischaemia [None]
  - Dyspnoea exertional [None]
  - Pleural effusion [None]
  - Pain [None]
  - Fatigue [None]
  - Troponin increased [None]
  - Malaise [None]
  - Myalgia [None]
  - Pericardial effusion [None]
  - Bed rest [None]
  - Coronary artery disease [None]
  - Pulmonary embolism [None]
  - Electrocardiogram ST segment elevation [None]
  - Inflammatory marker increased [None]

NARRATIVE: CASE EVENT DATE: 20160101
